FAERS Safety Report 20895050 (Version 2)
Quarter: 2022Q2

REPORT INFORMATION
  Report Type: Spontaneous
  Country: JP (occurrence: JP)
  Receive Date: 20220531
  Receipt Date: 20220606
  Transmission Date: 20220721
  Serious: Yes (Other)
  Sender: FDA-Public Use
  Company Number: JP-GLAXOSMITHKLINE-JP2022JPN084250

PATIENT

DRUGS (2)
  1. NUCALA [Suspect]
     Active Substance: MEPOLIZUMAB
     Indication: Eosinophilic granulomatosis with polyangiitis
     Dosage: 300 MG
     Dates: start: 20200214
  2. PREDONINE [Concomitant]
     Active Substance: PREDNISOLONE
     Indication: Eosinophil count increased
     Dosage: UNK

REACTIONS (5)
  - Enterovesical fistula [Recovering/Resolving]
  - Abdominal pain [Recovering/Resolving]
  - Eosinophilic granulomatosis with polyangiitis [Recovering/Resolving]
  - Condition aggravated [Recovering/Resolving]
  - Neutrophil count increased [Recovering/Resolving]

NARRATIVE: CASE EVENT DATE: 20210101
